FAERS Safety Report 9171880 (Version 2)
Quarter: 2013Q2

REPORT INFORMATION
  Report Type: Spontaneous
  Country: US (occurrence: US)
  Receive Date: 20130319
  Receipt Date: 20130416
  Transmission Date: 20140414
  Serious: No
  Sender: FDA-Public Use
  Company Number: US-PFIZER INC-2013087357

PATIENT
  Age: 66 Year
  Sex: Female

DRUGS (2)
  1. RAPAMUNE [Suspect]
     Indication: LYMPHANGIOLEIOMYOMATOSIS
     Dosage: 1MG (2) TABS PER DAY
     Dates: start: 20130205
  2. RAPAMUNE [Suspect]
     Dosage: 1MG (1) TABS PER DAY

REACTIONS (3)
  - Off label use [Unknown]
  - Blood calcium increased [Unknown]
  - Dehydration [Unknown]
